FAERS Safety Report 16495318 (Version 7)
Quarter: 2021Q4

REPORT INFORMATION
  Report Type: Report from Study
  Country: CO (occurrence: CO)
  Receive Date: 20190628
  Receipt Date: 20211104
  Transmission Date: 20220303
  Serious: Yes (Hospitalization, Other)
  Sender: FDA-Public Use
  Company Number: CO-002147023-PHHY2019CO037761

PATIENT

DRUGS (4)
  1. RUXOLITINIB [Suspect]
     Active Substance: RUXOLITINIB
     Indication: Myelofibrosis
     Dosage: 20 MG, Q12H
     Route: 048
     Dates: start: 2009
  2. RUXOLITINIB [Suspect]
     Active Substance: RUXOLITINIB
     Dosage: 20 MG, QD
     Route: 048
     Dates: end: 201909
  3. ABACAVIR [Concomitant]
     Active Substance: ABACAVIR
     Indication: HIV infection
     Dosage: UNK
     Route: 065
  4. CELEBRA [Concomitant]
     Active Substance: CELECOXIB
     Indication: HIV infection
     Dosage: UNK
     Route: 065

REACTIONS (26)
  - Myalgia [Unknown]
  - Anaemia [Unknown]
  - Gait inability [Unknown]
  - Sleep disorder [Unknown]
  - Choking [Unknown]
  - Diarrhoea [Unknown]
  - Discomfort [Unknown]
  - Dizziness [Unknown]
  - Syncope [Unknown]
  - Fatigue [Unknown]
  - Malaise [Unknown]
  - Ill-defined disorder [Unknown]
  - Headache [Unknown]
  - General physical health deterioration [Unknown]
  - Haemoglobin decreased [Unknown]
  - Product availability issue [Unknown]
  - Muscle atrophy [Unknown]
  - Nausea [Unknown]
  - Inflammation [Unknown]
  - Pain [Unknown]
  - Inappropriate schedule of product administration [Unknown]
  - Myelofibrosis [Not Recovered/Not Resolved]
  - Disease recurrence [Not Recovered/Not Resolved]
  - Hyperhidrosis [Unknown]
  - Splenomegaly [Unknown]
  - Vaginal haemorrhage [Unknown]

NARRATIVE: CASE EVENT DATE: 20190521
